FAERS Safety Report 18164118 (Version 3)
Quarter: 2020Q3

REPORT INFORMATION
  Report Type: Report from Study
  Country: AU (occurrence: AU)
  Receive Date: 20200818
  Receipt Date: 20200909
  Transmission Date: 20201103
  Serious: Yes (Death, Other)
  Sender: FDA-Public Use
  Company Number: AU-GLAXOSMITHKLINE-AU2020GSK073588

PATIENT
  Age: 70 Year
  Sex: Female

DRUGS (33)
  1. BORTEZOMIB. [Suspect]
     Active Substance: BORTEZOMIB
     Indication: PLASMA CELL MYELOMA
     Dosage: 3.4 MG/KG, CYC
     Route: 042
     Dates: end: 20200414
  2. ALLOPURINOL. [Concomitant]
     Active Substance: ALLOPURINOL
     Dosage: 300 MG, QD
     Route: 048
     Dates: start: 20200117
  3. AMLODIPINE [Concomitant]
     Active Substance: AMLODIPINE BESYLATE
     Indication: HYPERTENSION
     Dosage: 5 MG, QD
     Route: 048
     Dates: start: 20200130
  4. FRUSEMIDE [Concomitant]
     Active Substance: FUROSEMIDE
     Dosage: 80 MG, BID
     Route: 048
     Dates: start: 20200303, end: 20200416
  5. SLOW K [Concomitant]
     Active Substance: POTASSIUM CHLORIDE
     Dosage: 1200 MG, QD
     Route: 048
     Dates: start: 20200120, end: 20200311
  6. DEXAMETHASONE. [Suspect]
     Active Substance: DEXAMETHASONE
  7. LYRICA [Concomitant]
     Active Substance: PREGABALIN
     Indication: BACK PAIN
     Dosage: 50 MG, BID
     Route: 048
     Dates: start: 20191219, end: 20200117
  8. FRUSEMIDE [Concomitant]
     Active Substance: FUROSEMIDE
     Indication: OEDEMA PERIPHERAL
     Dosage: 40 MG, BID
     Route: 048
     Dates: start: 20200207, end: 20200302
  9. POTASSIUM CHLORIDE IN NORMAL SALINE [Concomitant]
     Indication: HYPOKALAEMIA
     Dosage: 20 MMOL, QD
     Route: 042
     Dates: start: 20200210, end: 20200210
  10. POTASSIUM CHLORIDE. [Concomitant]
     Active Substance: POTASSIUM CHLORIDE
     Indication: HYPOKALAEMIA
     Dosage: 1200 MG, TID
     Route: 048
     Dates: start: 20200312, end: 20200319
  11. POTASSIUM CHLORIDE. [Concomitant]
     Active Substance: POTASSIUM CHLORIDE
     Dosage: 600 MG, QD
     Route: 048
     Dates: start: 20200414, end: 20200415
  12. ENDONE [Concomitant]
     Active Substance: OXYCODONE HYDROCHLORIDE
     Indication: BACK PAIN
     Dosage: 5 MG, PRN
     Route: 048
     Dates: start: 20191208
  13. FENTANYL. [Concomitant]
     Active Substance: FENTANYL
     Dosage: 50 ?G
     Route: 042
     Dates: start: 20200427, end: 20200428
  14. AUGMENTIN DUO FORTE [Concomitant]
     Active Substance: AMOXICILLIN\CLAVULANATE POTASSIUM
     Indication: URINARY TRACT INFECTION
     Dosage: 1 DF, BID
     Route: 048
     Dates: start: 20200124, end: 20200128
  15. TARGIN [Concomitant]
     Active Substance: NALOXONE HYDROCHLORIDE\OXYCODONE HYDROCHLORIDE
     Dosage: 1 DF(CAPSULE), BID
     Route: 048
     Dates: start: 20200427, end: 20200428
  16. TARGIN [Concomitant]
     Active Substance: NALOXONE HYDROCHLORIDE\OXYCODONE HYDROCHLORIDE
     Indication: BACK PAIN
     Dosage: 1 DF(TABLET), BID
     Route: 048
     Dates: start: 20191219, end: 20200428
  17. LYRICA [Concomitant]
     Active Substance: PREGABALIN
     Indication: NEUROPATHY PERIPHERAL
     Dosage: 50 MG, BID
     Route: 048
     Dates: start: 20200218, end: 20200228
  18. ESOMEPRAZOLE. [Concomitant]
     Active Substance: ESOMEPRAZOLE MAGNESIUM
     Indication: PROPHYLAXIS
     Dosage: 40 MG, QD
     Route: 048
     Dates: start: 20200120, end: 20200426
  19. FRUSEMIDE [Concomitant]
     Active Substance: FUROSEMIDE
     Dosage: 80 MG QAM
     Route: 048
     Dates: start: 20200417
  20. LYRICA [Concomitant]
     Active Substance: PREGABALIN
     Dosage: 75 MG, BID
     Route: 048
     Dates: start: 20200228
  21. SYSTANE (HYPROMELLOSE 2910 (4000 MPA.S)) [Concomitant]
     Active Substance: HYPROMELLOSE 2910 (4000 MPA.S)
     Dosage: 1 DROP,TID
     Route: 047
     Dates: start: 20200120
  22. FRUSEMIDE [Concomitant]
     Active Substance: FUROSEMIDE
     Dosage: 40 MG, QD
     Route: 042
     Dates: start: 20200302, end: 20200302
  23. FRUSEMIDE [Concomitant]
     Active Substance: FUROSEMIDE
     Dosage: 40 MG, QD
     Route: 048
     Dates: start: 20200417
  24. BELANTAMAB MAFODOTIN. [Suspect]
     Active Substance: BELANTAMAB MAFODOTIN
     Indication: PLASMA CELL MYELOMA
     Dosage: 3.4 MG/KG, CYC
     Route: 042
     Dates: end: 20200414
  25. VALACICLOVIR [Concomitant]
     Active Substance: VALACYCLOVIR HYDROCHLORIDE
     Indication: ANTIVIRAL PROPHYLAXIS
     Dosage: 500 MG, QD
     Route: 048
     Dates: start: 20190328
  26. PANADOL [Concomitant]
     Active Substance: ACETAMINOPHEN
     Indication: BACK PAIN
     Dosage: 650 MG, TID
     Route: 048
     Dates: start: 20191112, end: 20200120
  27. METOCLOPRAMIDE. [Concomitant]
     Active Substance: METOCLOPRAMIDE
     Dosage: 10 MG, PRN
     Route: 048
     Dates: start: 20200120
  28. FENTANYL. [Concomitant]
     Active Substance: FENTANYL
     Indication: BACK PAIN
     Dosage: 100 UG, PRN
     Route: 060
     Dates: start: 20191219
  29. FENTANYL. [Concomitant]
     Active Substance: FENTANYL
     Indication: ABDOMINAL PAIN UPPER
     Dosage: 100 ?G
     Route: 042
     Dates: start: 20200426
  30. FENTANYL. [Concomitant]
     Active Substance: FENTANYL
     Dosage: 25 MG QH
     Route: 042
     Dates: start: 20200427, end: 20200427
  31. BACTRIM DS [Concomitant]
     Active Substance: SULFAMETHOXAZOLE\TRIMETHOPRIM
     Dosage: 1 DF(TABLET), QD
     Route: 048
     Dates: start: 20200120
  32. POTASSIUM CHLORIDE. [Concomitant]
     Active Substance: POTASSIUM CHLORIDE
     Dosage: 600 MG, BID
     Route: 048
     Dates: start: 20200320, end: 20200413
  33. POTASSIUM CHLORIDE. [Concomitant]
     Active Substance: POTASSIUM CHLORIDE
     Dosage: 600 MG, BID
     Route: 048
     Dates: start: 20200416

REACTIONS (1)
  - Hepatic failure [Fatal]

NARRATIVE: CASE EVENT DATE: 20200426
